FAERS Safety Report 23222772 (Version 1)
Quarter: 2023Q4

REPORT INFORMATION
  Report Type: Spontaneous
  Country: GB (occurrence: GB)
  Receive Date: 20231123
  Receipt Date: 20231123
  Transmission Date: 20240110
  Serious: Yes (Other)
  Sender: FDA-Public Use
  Company Number: GB-MHRA-ADR 28320927

PATIENT
  Age: 62 Year
  Sex: Male

DRUGS (1)
  1. ROSUVASTATIN [Suspect]
     Active Substance: ROSUVASTATIN
     Indication: Acute myocardial infarction
     Dosage: 20 MILLIGRAM, ONCE A DAY
     Route: 065
     Dates: start: 202305

REACTIONS (5)
  - Dystonia [Unknown]
  - Muscle spasms [Unknown]
  - Gait disturbance [Unknown]
  - Myalgia [Unknown]
  - Mobility decreased [Unknown]
